FAERS Safety Report 10948305 (Version 1)
Quarter: 2015Q1

REPORT INFORMATION
  Report Type: Spontaneous
  Country: US (occurrence: None)
  Receive Date: 20150323
  Receipt Date: 20150323
  Transmission Date: 20150721
  Serious: Yes (Life-Threatening, Hospitalization)
  Sender: FDA-Public Use
  Company Number: None

PATIENT
  Age: 8 Month
  Sex: Female
  Weight: 9 kg

DRUGS (13)
  1. RANITIDINE [Concomitant]
     Active Substance: RANITIDINE\RANITIDINE HYDROCHLORIDE
  2. IV FLUIDS [Concomitant]
     Active Substance: UNSPECIFIED INGREDIENT
  3. PENICILLIN G SOIDUM [Suspect]
     Active Substance: PENICILLIN G SODIUM
     Indication: CELLULITIS
     Dosage: 400000 UNITS
     Route: 042
     Dates: start: 20141025, end: 20141030
  4. TRAMADOL SUSPENSION [Concomitant]
  5. IBUPROFEN. [Concomitant]
     Active Substance: IBUPROFEN
  6. MICONAZOLE NITRATE 2% CREAM [Concomitant]
  7. CEFTRIAXONE IM [Concomitant]
  8. VANCOMYCIN [Concomitant]
     Active Substance: VANCOMYCIN
  9. ACETAMINOPEN [Concomitant]
     Active Substance: ACETAMINOPHEN
  10. MEROPENEM. [Concomitant]
     Active Substance: MEROPENEM
  11. PENICILLIN G SOIDUM [Suspect]
     Active Substance: PENICILLIN G SODIUM
     Indication: STREPTOCOCCAL BACTERAEMIA
     Dosage: 400000 UNITS
     Route: 042
     Dates: start: 20141025, end: 20141030
  12. CLINDAMYCIN [Concomitant]
     Active Substance: CLINDAMYCIN\CLINDAMYCIN PHOSPHATE
  13. LACTOBACILLUS GG [Concomitant]

REACTIONS (1)
  - Neutropenia [None]

NARRATIVE: CASE EVENT DATE: 20141029
